FAERS Safety Report 21296985 (Version 1)
Quarter: 2022Q3

REPORT INFORMATION
  Report Type: Spontaneous
  Country: US (occurrence: US)
  Receive Date: 20220906
  Receipt Date: 20220906
  Transmission Date: 20221027
  Serious: Yes (Other)
  Sender: FDA-Public Use
  Company Number: US-BAYER-2022A121162

PATIENT
  Age: 52 Year
  Sex: Female

DRUGS (3)
  1. ALEVE [Suspect]
     Active Substance: NAPROXEN SODIUM
     Dosage: UNK
  2. SPANDAR [Concomitant]
  3. CAFFEINE [Concomitant]
     Active Substance: CAFFEINE

REACTIONS (1)
  - Drug dependence [Unknown]
